FAERS Safety Report 4277328-1 (Version None)
Quarter: 2004Q1

REPORT INFORMATION
  Report Type: 
  Country: None (occurrence: None)
  Receive Date: 20040121
  Receipt Date: 20040112
  Transmission Date: 20041129
  Serious: Yes (Hospitalization)
  Sender: FDA-Public Use
  Company Number: US-SHR-04-019783

PATIENT
  Age: 47 Year
  Sex: Female

DRUGS (7)
  1. BETASERON [Suspect]
     Indication: MULTIPLE SCLEROSIS
     Dosage: 8 MIU, EVERY 2D, SUBCUTANEOUS
     Route: 058
     Dates: start: 19980101
  2. INSULIN [Concomitant]
  3. PROVIGIL [Concomitant]
  4. PROZAC [Concomitant]
  5. ZANAFLEX [Concomitant]
  6. VALIUM /NET/ (DIAZEPAM) [Concomitant]
  7. SOLU-MEDROL /USA/ (METHYLPREDNISOLONE SODIUM SUCCINATE) [Concomitant]

REACTIONS (3)
  - LEG CRUSHING [None]
  - POSTOPERATIVE INFECTION [None]
  - ROAD TRAFFIC ACCIDENT [None]
